FAERS Safety Report 14962203 (Version 3)
Quarter: 2019Q4

REPORT INFORMATION
  Report Type: Spontaneous
  Country: US (occurrence: US)
  Receive Date: 20180601
  Receipt Date: 20191018
  Transmission Date: 20200122
  Serious: Yes (Death, Other)
  Sender: FDA-Public Use
  Company Number: US-ASTRAZENECA-2018SE71279

PATIENT
  Age: 29547 Day
  Sex: Female
  Weight: 83.9 kg

DRUGS (56)
  1. NEXIUM [Suspect]
     Active Substance: ESOMEPRAZOLE MAGNESIUM
     Route: 048
     Dates: start: 2001, end: 2014
  2. PRILOSEC [Suspect]
     Active Substance: OMEPRAZOLE MAGNESIUM
     Route: 048
     Dates: start: 2001, end: 2014
  3. PROAIR HFA [Concomitant]
     Active Substance: ALBUTEROL SULFATE
     Indication: WHEEZING
  4. SYNTHROID [Concomitant]
     Active Substance: LEVOTHYROXINE SODIUM
  5. FLUOCINONIDE. [Concomitant]
     Active Substance: FLUOCINONIDE
  6. NEXIUM [Suspect]
     Active Substance: ESOMEPRAZOLE MAGNESIUM
     Route: 048
     Dates: start: 1989, end: 2016
  7. DEXILANT [Suspect]
     Active Substance: DEXLANSOPRAZOLE
     Route: 065
     Dates: start: 1989, end: 2016
  8. PROTONIX [Suspect]
     Active Substance: PANTOPRAZOLE SODIUM
     Route: 065
     Dates: start: 2001, end: 2014
  9. ACETAMINOPHEN. [Concomitant]
     Active Substance: ACETAMINOPHEN
     Indication: PAIN
  10. ZITHROMAX [Concomitant]
     Active Substance: AZITHROMYCIN DIHYDRATE
  11. PLAVIX [Concomitant]
     Active Substance: CLOPIDOGREL BISULFATE
     Indication: HAEMORRHAGE
  12. PENICILLIN [Concomitant]
     Active Substance: PENICILLIN
  13. ALDACTONE [Concomitant]
     Active Substance: SPIRONOLACTONE
  14. GABAPENTIN. [Concomitant]
     Active Substance: GABAPENTIN
     Indication: PAIN
  15. DIPHENHYDRAMINE. [Concomitant]
     Active Substance: DIPHENHYDRAMINE
  16. CLINDAMYCIN. [Concomitant]
     Active Substance: CLINDAMYCIN
  17. NAMENDA [Concomitant]
     Active Substance: MEMANTINE HYDROCHLORIDE
     Indication: DEMENTIA
  18. NEXIUM [Suspect]
     Active Substance: ESOMEPRAZOLE MAGNESIUM
     Route: 048
     Dates: start: 20060926, end: 200702
  19. VIMOVO [Suspect]
     Active Substance: ESOMEPRAZOLE MAGNESIUM\NAPROXEN
     Route: 048
     Dates: start: 1989, end: 2016
  20. PRILOSEC [Suspect]
     Active Substance: OMEPRAZOLE MAGNESIUM
     Route: 048
     Dates: start: 20010110, end: 200204
  21. PROTONIX [Suspect]
     Active Substance: PANTOPRAZOLE SODIUM
     Route: 065
     Dates: start: 1989, end: 2016
  22. ACIPHEX [Suspect]
     Active Substance: RABEPRAZOLE SODIUM
     Route: 065
     Dates: start: 1989, end: 2016
  23. DILTIAZEM. [Concomitant]
     Active Substance: DILTIAZEM
  24. CYCLOBENZAPRINE. [Concomitant]
     Active Substance: CYCLOBENZAPRINE
  25. LOVAZA [Concomitant]
     Active Substance: OMEGA-3-ACID ETHYL ESTERS
  26. PRILOSEC [Suspect]
     Active Substance: OMEPRAZOLE MAGNESIUM
     Route: 048
     Dates: start: 20140617, end: 20141223
  27. VITAMIN B12 [Concomitant]
     Active Substance: CYANOCOBALAMIN
  28. VITAMIN D [Concomitant]
     Active Substance: VITAMIN D NOS
  29. SPIRONOLACTONE. [Concomitant]
     Active Substance: SPIRONOLACTONE
  30. NASONEX [Concomitant]
     Active Substance: MOMETASONE FUROATE
  31. METOPROLOL. [Concomitant]
     Active Substance: METOPROLOL
     Indication: BLOOD PRESSURE MEASUREMENT
  32. NEXIUM 24HR [Suspect]
     Active Substance: ESOMEPRAZOLE MAGNESIUM
     Route: 048
     Dates: start: 1989, end: 2016
  33. PRILOSEC OTC [Suspect]
     Active Substance: OMEPRAZOLE MAGNESIUM
     Route: 048
     Dates: start: 1989, end: 2016
  34. PREVACID 24 HR [Suspect]
     Active Substance: LANSOPRAZOLE
     Route: 065
     Dates: start: 1989, end: 2016
  35. PROTONIX [Suspect]
     Active Substance: PANTOPRAZOLE SODIUM
     Route: 065
     Dates: start: 20020325, end: 200602
  36. ROBITUSSIN (GUAIFENESIN) [Concomitant]
     Active Substance: GUAIFENESIN
     Indication: COUGH
  37. DOCUSATE SODIUM. [Concomitant]
     Active Substance: DOCUSATE SODIUM
  38. LIPITOR [Concomitant]
     Active Substance: ATORVASTATIN CALCIUM
  39. CIPRO [Concomitant]
     Active Substance: CIPROFLOXACIN HYDROCHLORIDE
  40. PRILOSEC [Suspect]
     Active Substance: OMEPRAZOLE MAGNESIUM
     Route: 048
     Dates: start: 1989, end: 2016
  41. CRESTOR [Concomitant]
     Active Substance: ROSUVASTATIN CALCIUM
     Indication: BLOOD CHOLESTEROL
     Route: 048
  42. ROBITUSSIN (GUAIFENESIN) [Concomitant]
     Active Substance: GUAIFENESIN
     Indication: CARDIAC FAILURE CONGESTIVE
  43. NITROGLYCERIN. [Concomitant]
     Active Substance: NITROGLYCERIN
     Indication: CHEST PAIN
  44. CODEINE [Concomitant]
     Active Substance: CODEINE
     Indication: VOMITING
  45. CODEINE [Concomitant]
     Active Substance: CODEINE
     Indication: NAUSEA
  46. MOTRIN [Concomitant]
     Active Substance: IBUPROFEN
     Indication: MALAISE
  47. MOTRIN [Concomitant]
     Active Substance: IBUPROFEN
     Indication: VOMITING
  48. CARDIZEM [Concomitant]
     Active Substance: DILTIAZEM HYDROCHLORIDE
  49. LEVAQUIN [Concomitant]
     Active Substance: LEVOFLOXACIN
  50. ZETIA [Concomitant]
     Active Substance: EZETIMIBE
     Indication: BLOOD CHOLESTEROL
  51. PREVACID [Suspect]
     Active Substance: LANSOPRAZOLE
     Route: 065
     Dates: start: 1989, end: 2016
  52. NITROGLYCERIN. [Concomitant]
     Active Substance: NITROGLYCERIN
     Indication: ANGINA PECTORIS
  53. METOCLOPRAMIDE. [Concomitant]
     Active Substance: METOCLOPRAMIDE
  54. FERREX [Concomitant]
     Active Substance: FERRIC POLYSACCHARIDE COMPLEX
  55. ALBUTEROL. [Concomitant]
     Active Substance: ALBUTEROL
  56. CLINDAMYCIN. [Concomitant]
     Active Substance: CLINDAMYCIN

REACTIONS (3)
  - Renal failure [Unknown]
  - Chronic kidney disease [Unknown]
  - Dementia Alzheimer^s type [Fatal]

NARRATIVE: CASE EVENT DATE: 20110527
